FAERS Safety Report 10052971 (Version 1)
Quarter: 2014Q2

REPORT INFORMATION
  Report Type: Report from Study
  Country: FR (occurrence: FR)
  Receive Date: 20140402
  Receipt Date: 20140402
  Transmission Date: 20141212
  Serious: Yes (Hospitalization)
  Sender: FDA-Public Use
  Company Number: PHHY2014FR037113

PATIENT
  Age: 13 Year
  Sex: Male
  Weight: 31 kg

DRUGS (1)
  1. SOMATROPIN [Suspect]
     Indication: GROWTH HORMONE DEFICIENCY
     Dosage: 1.5 MG, QD
     Route: 058
     Dates: start: 20090315, end: 20091025

REACTIONS (5)
  - Fall [Unknown]
  - Skull fractured base [Unknown]
  - Concussion [Recovered/Resolved]
  - Extradural haematoma [Recovered/Resolved]
  - Pain [Unknown]
